FAERS Safety Report 5295373-4 (Version None)
Quarter: 2007Q2

REPORT INFORMATION
  Report Type: 
  Country: None (occurrence: None)
  Receive Date: 20070412
  Receipt Date: 20070402
  Transmission Date: 20071010
  Serious: Yes (Other)
  Sender: FDA-Public Use
  Company Number: DE-PFIZER INC-2007023320

PATIENT
  Age: 57 Year
  Sex: Female

DRUGS (1)
  1. CHAMPIX [Suspect]
     Indication: DRUG WITHDRAWAL SYNDROME
     Route: 048
     Dates: start: 20070317, end: 20070324

REACTIONS (6)
  - DRUG WITHDRAWAL SYNDROME [None]
  - HYPOTONIA [None]
  - RESPIRATORY DEPRESSION [None]
  - RESTLESSNESS [None]
  - SEDATION [None]
  - VISUAL DISTURBANCE [None]
